FAERS Safety Report 13398074 (Version 1)
Quarter: 2017Q2

REPORT INFORMATION
  Report Type: Spontaneous
  Country: CH (occurrence: CH)
  Receive Date: 20170403
  Receipt Date: 20170403
  Transmission Date: 20170830
  Serious: Yes (Death)
  Sender: FDA-Public Use
  Company Number: CH-TEVA-756042ISR

PATIENT
  Age: 64 Year
  Sex: Male

DRUGS (2)
  1. SIMVASTATIN-MEPHA [Suspect]
     Active Substance: SIMVASTATIN
     Indication: FAMILIAL RISK FACTOR
     Route: 048
     Dates: start: 20170301
  2. CANSARTAN-MEPHA [Suspect]
     Active Substance: CANDESARTAN CILEXETIL
     Indication: FAMILIAL RISK FACTOR
     Route: 048
     Dates: start: 20170301

REACTIONS (1)
  - Myocardial infarction [Fatal]

NARRATIVE: CASE EVENT DATE: 20170324
